FAERS Safety Report 23779325 (Version 1)
Quarter: 2024Q2

REPORT INFORMATION
  Report Type: Spontaneous
  Country: US (occurrence: None)
  Receive Date: 20240418
  Receipt Date: 20240418
  Transmission Date: 20240715
  Serious: No
  Sender: FDA-Public Use
  Company Number: None

PATIENT
  Age: 52 Year
  Sex: Male
  Weight: 82.35 kg

DRUGS (1)
  1. REGENER-EYES LITE [Suspect]
     Active Substance: GLYCERIN
     Indication: Dry eye

REACTIONS (7)
  - Product label issue [None]
  - Product container issue [None]
  - Suspected product quality issue [None]
  - Product use in unapproved indication [None]
  - Product communication issue [None]
  - Product advertising issue [None]
  - Legal problem [None]

NARRATIVE: CASE EVENT DATE: 20240418
